FAERS Safety Report 4404429-7 (Version None)
Quarter: 2004Q3

REPORT INFORMATION
  Report Type: 
  Country: None (occurrence: None)
  Receive Date: 20040720
  Receipt Date: 20040707
  Transmission Date: 20050211
  Serious: Yes (Hospitalization, Other)
  Sender: FDA-Public Use
  Company Number: US-JNJFOC-20040404789

PATIENT
  Age: 34 Year
  Sex: Female
  Weight: 80.7403 kg

DRUGS (9)
  1. REMICADE [Suspect]
     Indication: CROHN'S DISEASE
     Dosage: INTRAVENOUS
     Route: 036
     Dates: start: 20030424
  2. CELEBREX [Concomitant]
  3. PRENATAL  VITAMINS (PRENATAL VITAMINS) [Concomitant]
  4. LOMOTIL [Concomitant]
  5. IMODIUM [Concomitant]
  6. PENTASA [Concomitant]
  7. NEURONTIN [Concomitant]
  8. TIZANIDINE (TIZANIDINE) [Concomitant]
  9. DIAZEPAM [Concomitant]

REACTIONS (16)
  - ASTHENIA [None]
  - BURNING SENSATION [None]
  - COORDINATION ABNORMAL [None]
  - DRUG EXPOSURE DURING PREGNANCY [None]
  - ELECTROMYOGRAM ABNORMAL [None]
  - GASTROENTERITIS VIRAL [None]
  - HYPOAESTHESIA [None]
  - LOSS OF CONSCIOUSNESS [None]
  - MIGRAINE [None]
  - MUSCLE SPASMS [None]
  - PAIN IN EXTREMITY [None]
  - PARAESTHESIA [None]
  - PHARYNGEAL CYST [None]
  - PORPHYRIA ACUTE [None]
  - PRURITUS GENERALISED [None]
  - VISUAL DISTURBANCE [None]
